FAERS Safety Report 7137105-0 (Version None)
Quarter: 2010Q4

REPORT INFORMATION
  Report Type: 
  Country: None (occurrence: None)
  Receive Date: 20101206
  Receipt Date: 20101005
  Transmission Date: 20110411
  Serious: No
  Sender: FDA-Public Use
  Company Number: JP-JNJFOC-20101201186

PATIENT
  Age: 46 Year
  Sex: Female
  Weight: 68 kg

DRUGS (20)
  1. DUROTEP MT [Suspect]
     Indication: PAIN
     Route: 062
  2. HYPEN [Concomitant]
     Indication: PAIN
     Route: 048
  3. CALONAL [Concomitant]
     Indication: PAIN
     Route: 048
  4. CALONAL [Concomitant]
     Route: 048
  5. GABAPEN [Concomitant]
     Indication: PAIN
     Route: 048
  6. GASTER D [Concomitant]
     Indication: PAIN
     Route: 048
  7. MEXITIL [Concomitant]
     Indication: PAIN
     Route: 048
  8. NEUROTROPIN [Concomitant]
     Indication: PAIN
     Route: 048
  9. NEUROTROPIN [Concomitant]
     Route: 048
  10. NEUROTROPIN [Concomitant]
     Route: 048
  11. GASMOTIN [Concomitant]
     Indication: PROPHYLAXIS
     Route: 048
  12. FLURBIPROFEN [Concomitant]
     Indication: PAIN
     Route: 042
  13. FLURBIPROFEN [Concomitant]
     Route: 042
  14. MEXITIL [Concomitant]
     Route: 065
  15. NEO VITACAIN [Concomitant]
     Indication: PAIN
     Route: 065
  16. NEO VITACAIN [Concomitant]
     Route: 065
  17. XYLOCAINE [Concomitant]
     Indication: PAIN
     Route: 065
  18. XYLOCAINE [Concomitant]
     Route: 065
  19. ROPIVACAINE HYDROCHLORIDE [Concomitant]
     Indication: PAIN
     Route: 065
  20. ROPIVACAINE HYDROCHLORIDE [Concomitant]
     Route: 065

REACTIONS (1)
  - DRUG PRESCRIBING ERROR [None]
